FAERS Safety Report 4911210-9 (Version None)
Quarter: 2006Q1

REPORT INFORMATION
  Report Type: 
  Country: None (occurrence: None)
  Receive Date: 20060209
  Receipt Date: 20060130
  Transmission Date: 20060701
  Serious: Yes (Life-Threatening, Hospitalization, Other)
  Sender: FDA-Public Use
  Company Number: 2006015976

PATIENT
  Age: 65 Year
  Sex: Male
  Weight: 98 kg

DRUGS (5)
  1. INSPRA [Suspect]
     Indication: CARDIAC FAILURE
     Dosage: 50 MG , ORAL
     Route: 048
     Dates: start: 20051013
  2. WARFARIN SODIUM [Concomitant]
  3. BUMETANIDE [Concomitant]
  4. ATORVASTATIN CALCIUM [Concomitant]
  5. CANDESARTAN [Concomitant]

REACTIONS (2)
  - ATRIAL FIBRILLATION [None]
  - ATRIOVENTRICULAR BLOCK FIRST DEGREE [None]
